FAERS Safety Report 17272646 (Version 1)
Quarter: 2020Q3

REPORT INFORMATION
  Report Type: Spontaneous
  Country: US (occurrence: US)
  Receive Date: 20200114
  Receipt Date: 20200114
  Transmission Date: 20201104
  Serious: Yes (Disabling)
  Sender: FDA-Public Use
  Company Number: None

PATIENT
  Age: 60 Year
  Sex: Female
  Weight: 54 kg

DRUGS (6)
  1. TEMAZEPAM. [Suspect]
     Active Substance: TEMAZEPAM
  2. VITAMIN B12 [Concomitant]
     Active Substance: CYANOCOBALAMIN
  3. LORAZEPAM. [Suspect]
     Active Substance: LORAZEPAM
     Indication: INSOMNIA
     Route: 048
     Dates: start: 20141229, end: 20150601
  4. EVENING PRIMROSE OIL [Concomitant]
     Active Substance: EVENING PRIMROSE OIL\HERBALS
  5. KRILL OIL [Suspect]
     Active Substance: DIETARY SUPPLEMENT\KRILL OIL
  6. MULTIVITAMIN SUPPLEMENTS [Concomitant]

REACTIONS (17)
  - Lethargy [None]
  - Crying [None]
  - Anxiety [None]
  - Depression [None]
  - Asthenia [None]
  - Mood altered [None]
  - Tinnitus [None]
  - Headache [None]
  - Myalgia [None]
  - Parosmia [None]
  - Fatigue [None]
  - Fear [None]
  - Visual impairment [None]
  - Hyperacusis [None]
  - Drug ineffective [None]
  - Nervousness [None]
  - Nausea [None]

NARRATIVE: CASE EVENT DATE: 20141229
